FAERS Safety Report 8499555-X (Version None)
Quarter: 2012Q3

REPORT INFORMATION
  Report Type: 
  Country: None (occurrence: None)
  Receive Date: 20120710
  Receipt Date: 20120629
  Transmission Date: 20120928
  Serious: Yes (Other)
  Sender: FDA-Public Use
  Company Number: ES-BRISTOL-MYERS SQUIBB COMPANY-16536237

PATIENT
  Age: 60 Year
  Sex: Male

DRUGS (3)
  1. RAMIPRIL [Concomitant]
  2. LORAZEPAM [Concomitant]
  3. SPRYCEL [Suspect]
     Indication: CHRONIC MYELOID LEUKAEMIA
     Route: 048
     Dates: start: 20110615, end: 20120415

REACTIONS (4)
  - PLEURAL EFFUSION [None]
  - ACUTE PULMONARY OEDEMA [None]
  - RESPIRATORY FAILURE [None]
  - PERICARDIAL EFFUSION [None]
